FAERS Safety Report 7076165-2 (Version None)
Quarter: 2010Q4

REPORT INFORMATION
  Report Type: 
  Country: None (occurrence: None)
  Receive Date: 20101101
  Receipt Date: 20101006
  Transmission Date: 20110411
  Serious: Yes (Hospitalization, Other)
  Sender: FDA-Public Use
  Company Number: US-BAYER-201010712NA

PATIENT
  Age: 20 Year
  Sex: Female
  Weight: 127 kg

DRUGS (5)
  1. YASMIN [Suspect]
     Indication: MENSTRUAL DISORDER
     Route: 048
     Dates: start: 20040901, end: 20070201
  2. YAZ [Suspect]
  3. ADVIL [Concomitant]
     Indication: PAIN
  4. GARDASIL [Concomitant]
  5. XANAX [Concomitant]
     Indication: ANXIETY

REACTIONS (8)
  - ABDOMINAL PAIN UPPER [None]
  - BACK PAIN [None]
  - CHOLECYSTITIS CHRONIC [None]
  - CHOLELITHIASIS [None]
  - GASTROOESOPHAGEAL REFLUX DISEASE [None]
  - MUSCULOSKELETAL CHEST PAIN [None]
  - NAUSEA [None]
  - VOMITING [None]
